FAERS Safety Report 20746020 (Version 2)
Quarter: 2022Q3

REPORT INFORMATION
  Report Type: Report from Study
  Country: US (occurrence: US)
  Receive Date: 20220425
  Receipt Date: 20220722
  Transmission Date: 20221027
  Serious: No
  Sender: FDA-Public Use
  Company Number: US-MIRM-000274

PATIENT
  Sex: Male

DRUGS (1)
  1. LIVMARLI [Suspect]
     Active Substance: MARALIXIBAT CHLORIDE
     Indication: Product used for unknown indication
     Dosage: MAR2022: LOT #: 1847502/EXPIRY: 31MAY2023?04APR2022: LOT #: 1847497A/EXPIRY 30NOV2022
     Route: 048
     Dates: start: 20211030

REACTIONS (4)
  - Pruritus [Unknown]
  - Drug ineffective [Unknown]
  - Upper respiratory tract congestion [Unknown]
  - Laboratory test abnormal [Unknown]
